FAERS Safety Report 20569669 (Version 1)
Quarter: 2022Q1

REPORT INFORMATION
  Report Type: Spontaneous
  Country: US (occurrence: US)
  Receive Date: 20220309
  Receipt Date: 20220309
  Transmission Date: 20220424
  Serious: No
  Sender: FDA-Public Use
  Company Number: US-JNJFOC-20220302730

PATIENT
  Sex: Male

DRUGS (1)
  1. ZYTIGA [Suspect]
     Active Substance: ABIRATERONE ACETATE
     Indication: Product used for unknown indication
     Dosage: TAKE 2TABLETS BY MOUTHONCE DAILY AS DIRECTED
     Route: 048

REACTIONS (3)
  - COVID-19 [Unknown]
  - Sinus congestion [Unknown]
  - Herpes zoster [Unknown]
